FAERS Safety Report 25797055 (Version 2)
Quarter: 2025Q4

REPORT INFORMATION
  Report Type: Spontaneous
  Country: CA (occurrence: CA)
  Receive Date: 20250912
  Receipt Date: 20251001
  Transmission Date: 20260117
  Serious: Yes (Hospitalization)
  Sender: AMERICAN REGENT
  Company Number: CA-AMERICAN REGENT INC-2025003436

PATIENT
  Age: 30 Year
  Sex: Female
  Weight: 64.9 kg

DRUGS (2)
  1. VENOFER [Suspect]
     Active Substance: IRON SUCROSE
     Indication: Anaemia
     Dosage: 300 MILLIGRAM
     Route: 042
     Dates: start: 20250315
  2. VENOFER [Suspect]
     Active Substance: IRON SUCROSE
     Dosage: 300 MILLIGRAM
     Route: 042
     Dates: start: 20250524, end: 20250524

REACTIONS (3)
  - Rash [Unknown]
  - Abdominal discomfort [Unknown]
  - Chest discomfort [Unknown]

NARRATIVE: CASE EVENT DATE: 20250524
